FAERS Safety Report 10956085 (Version 2)
Quarter: 2015Q2

REPORT INFORMATION
  Report Type: Spontaneous
  Country: BR (occurrence: BR)
  Receive Date: 20150326
  Receipt Date: 20150421
  Transmission Date: 20150821
  Serious: Yes (Other)
  Sender: FDA-Public Use
  Company Number: BR-BAYER-2015-045231

PATIENT
  Age: 35 Year
  Sex: Female
  Weight: 57 kg

DRUGS (8)
  1. YAZ [Suspect]
     Active Substance: DROSPIRENONE\ETHINYL ESTRADIOL
     Indication: BREAST PAIN
  2. YAZ [Suspect]
     Active Substance: DROSPIRENONE\ETHINYL ESTRADIOL
     Indication: NAUSEA
  3. PREDNISOLON [PREDNISOLONE] [Concomitant]
     Indication: PERIPHERAL SWELLING
  4. PREDNISOLON [PREDNISOLONE] [Concomitant]
     Indication: PAIN IN EXTREMITY
     Dosage: 40 MG, QD
     Route: 048
  5. YAZ [Suspect]
     Active Substance: DROSPIRENONE\ETHINYL ESTRADIOL
     Indication: DYSMENORRHOEA
     Dosage: UNK
     Route: 048
     Dates: start: 2007
  6. YAZ [Suspect]
     Active Substance: DROSPIRENONE\ETHINYL ESTRADIOL
     Indication: BACK PAIN
  7. YAZ [Suspect]
     Active Substance: DROSPIRENONE\ETHINYL ESTRADIOL
     Indication: VOMITING
  8. YAZ [Suspect]
     Active Substance: DROSPIRENONE\ETHINYL ESTRADIOL
     Indication: ABDOMINAL PAIN

REACTIONS (7)
  - Syncope [Recovered/Resolved]
  - Ear pain [Recovering/Resolving]
  - Head discomfort [None]
  - Chronic sinusitis [Not Recovered/Not Resolved]
  - Headache [Recovering/Resolving]
  - Drug administration error [None]
  - Asthenia [Recovering/Resolving]

NARRATIVE: CASE EVENT DATE: 20150215
